FAERS Safety Report 25412083 (Version 1)
Quarter: 2025Q2

REPORT INFORMATION
  Report Type: Spontaneous
  Country: GB (occurrence: GB)
  Receive Date: 20250609
  Receipt Date: 20250609
  Transmission Date: 20250717
  Serious: Yes (Life-Threatening)
  Sender: RANBAXY
  Company Number: GB-MHRA-TPP21503087C7633740YC1748336373183

PATIENT
  Age: 36 Year
  Sex: Female
  Weight: 79 kg

DRUGS (3)
  1. CITALOPRAM [Suspect]
     Active Substance: CITALOPRAM
     Indication: Ill-defined disorder
     Route: 065
     Dates: start: 20250523
  2. CITALOPRAM [Concomitant]
     Active Substance: CITALOPRAM
     Indication: Ill-defined disorder
     Route: 065
     Dates: start: 20250404
  3. DEPO-PROVERA [Concomitant]
     Active Substance: MEDROXYPROGESTERONE ACETATE
     Indication: Ill-defined disorder
     Route: 065
     Dates: start: 20241106

REACTIONS (1)
  - Dermatitis allergic [Recovering/Resolving]

NARRATIVE: CASE EVENT DATE: 20250527
